FAERS Safety Report 6814373-3 (Version None)
Quarter: 2010Q3

REPORT INFORMATION
  Report Type: 
  Country: None (occurrence: None)
  Receive Date: 20100702
  Receipt Date: 20100622
  Transmission Date: 20110219
  Serious: Yes (Hospitalization)
  Sender: FDA-Public Use
  Company Number: DE-ELI_LILLY_AND_COMPANY-DE201005005498

PATIENT
  Sex: Female
  Weight: 95 kg

DRUGS (22)
  1. PEMETREXED [Suspect]
     Indication: NON-SMALL CELL LUNG CANCER
     Dosage: 500 MG/M2, DAY 1 EVERY 21 DAYS
     Route: 042
  2. CISPLATIN [Suspect]
     Indication: NON-SMALL CELL LUNG CANCER
     Dosage: 75 MG/M2, DAY 1 EVERY 21 DAYS
     Route: 042
  3. PEMETREXED [Suspect]
     Dosage: UNK, ON D1 EVERY 21 DAYS
     Route: 042
     Dates: start: 20100114
  4. FOLIC ACID [Concomitant]
     Indication: PROPHYLAXIS
     Dates: start: 20091007
  5. VITAMIN B-12 [Concomitant]
     Indication: PROPHYLAXIS
     Dates: start: 20100225, end: 20100225
  6. DEXAMETHASONE [Concomitant]
     Indication: PROPHYLAXIS
     Dates: start: 20100427, end: 20100429
  7. AMITRIPTYLINE HCL [Concomitant]
     Dates: start: 20091002
  8. LEVOTHYROXINE SODIUM [Concomitant]
     Dates: start: 20091002
  9. ZOPICLON [Concomitant]
     Dates: start: 20091002
  10. TARGIN [Concomitant]
     Dates: start: 20091005
  11. NOVALGIN [Concomitant]
     Dates: start: 20091005
  12. TOREM COR [Concomitant]
     Dates: start: 20091006
  13. PARACODIN /00063001/ [Concomitant]
     Dates: start: 20091002
  14. LORAZEPAM [Concomitant]
     Dates: start: 20091002
  15. OXYGESIC [Concomitant]
     Dates: start: 20091005
  16. PANTOZOL [Concomitant]
     Dates: start: 20091012
  17. ALBUTEROL [Concomitant]
     Dates: start: 20100114
  18. MOVICOL /01053601/ [Concomitant]
     Dates: start: 20090928
  19. SEVREDOL [Concomitant]
     Dates: start: 20100106
  20. DELIX [Concomitant]
     Dates: start: 20091124
  21. MAGNESIUM [Concomitant]
     Dates: start: 20091124
  22. IBUPROFEN [Concomitant]
     Dates: start: 20090901

REACTIONS (2)
  - BACK PAIN [None]
  - FACIAL PARESIS [None]
